FAERS Safety Report 7391528-3 (Version None)
Quarter: 2011Q2

REPORT INFORMATION
  Report Type: 
  Country: None (occurrence: None)
  Receive Date: 20110404
  Receipt Date: 20110330
  Transmission Date: 20111010
  Serious: Yes (Hospitalization, Other)
  Sender: FDA-Public Use
  Company Number: FR-TEVA-272014ISR

PATIENT
  Age: 48 Year
  Sex: Male

DRUGS (4)
  1. FLUOROURACIL [Suspect]
     Indication: COLON CANCER
     Route: 040
  2. OXALIPLATIN [Suspect]
  3. CALCIUM FOLINATE [Suspect]
  4. FLUOROURACIL [Suspect]
     Dosage: SLOW INFUSION OVER 46 HOURS

REACTIONS (4)
  - DIARRHOEA [None]
  - STATUS EPILEPTICUS [None]
  - STRESS CARDIOMYOPATHY [None]
  - VOMITING [None]
